FAERS Safety Report 17131149 (Version 2)
Quarter: 2019Q4

REPORT INFORMATION
  Report Type: Report from Study
  Country: US (occurrence: US)
  Receive Date: 20191209
  Receipt Date: 20191217
  Transmission Date: 20200122
  Serious: Yes (Hospitalization, Other)
  Sender: FDA-Public Use
  Company Number: US-ACTELION-A-NJ2019-195228

PATIENT
  Sex: Male

DRUGS (1)
  1. OPSUMIT [Suspect]
     Active Substance: MACITENTAN
     Indication: PULMONARY ARTERIAL HYPERTENSION
     Dosage: 10 MG, QD
     Route: 048
     Dates: start: 20190313

REACTIONS (10)
  - Hip arthroplasty [Unknown]
  - Cervical vertebral fracture [Recovering/Resolving]
  - Wrist fracture [Unknown]
  - Mental impairment [Unknown]
  - Oral herpes [Recovering/Resolving]
  - Malaise [Unknown]
  - Fall [Recovering/Resolving]
  - Hip fracture [Unknown]
  - Muscle spasms [Unknown]
  - Product dose omission [Unknown]
